FAERS Safety Report 7460648-7 (Version None)
Quarter: 2011Q2

REPORT INFORMATION
  Report Type: 
  Country: None (occurrence: None)
  Receive Date: 20110505
  Receipt Date: 20101112
  Transmission Date: 20111010
  Serious: Yes (Death, Hospitalization)
  Sender: FDA-Public Use
  Company Number: JP-BAYER-201014746BYL

PATIENT
  Age: 63 Year
  Sex: Male
  Weight: 66 kg

DRUGS (17)
  1. SORAFENIB (RAF KINASE INHIBITOR) [Suspect]
     Dosage: 400 MG, BID
     Dates: start: 20100925, end: 20110107
  2. LACTITOL [Concomitant]
     Indication: HYPERAMMONAEMIA
     Dosage: 6 MG, TID
     Route: 048
     Dates: start: 20080215, end: 20110307
  3. AMINOLEBAN [Concomitant]
     Indication: HYPERAMMONAEMIA
     Dosage: 500 ML, QD
     Route: 042
     Dates: start: 20100907, end: 20100909
  4. NEUROBION [Concomitant]
     Dosage: UNK
     Dates: start: 20100908, end: 20100909
  5. FAMOTIDINE [Concomitant]
     Indication: GASTRITIS
     Dosage: 40 MG, BID
     Route: 065
     Dates: start: 20080913, end: 20110307
  6. BASEN [Concomitant]
     Indication: DIABETES MELLITUS
     Route: 048
     Dates: start: 20080913
  7. VOGLIBOSE [Concomitant]
     Indication: DIABETES MELLITUS
     Dosage: UNK
     Dates: start: 20080913, end: 20110307
  8. FLURBIPROFEN [Concomitant]
     Indication: PYREXIA
     Dosage: UNK
     Dates: start: 20100908, end: 20100909
  9. FALKAMIN [Concomitant]
     Indication: HYPOALBUMINAEMIA
     Dosage: 8.3 MG, UNK
     Dates: start: 20101108
  10. FAROPENEM [Concomitant]
     Indication: INFECTION
     Dosage: UNK
     Dates: start: 20100911
  11. SORAFENIB (RAF KINASE INHIBITOR) [Suspect]
     Indication: HEPATIC NEOPLASM MALIGNANT
     Dosage: 400 MG, BID
     Route: 048
     Dates: start: 20100814, end: 20100827
  12. OMEPRAZOLE [Concomitant]
     Indication: GASTRITIS
     Dosage: 20 MG, QD
     Dates: start: 20100907, end: 20100909
  13. SORAFENIB (RAF KINASE INHIBITOR) [Suspect]
     Dosage: 400 MG, BID
     Route: 048
     Dates: start: 20100906, end: 20100907
  14. SORAFENIB (RAF KINASE INHIBITOR) [Suspect]
     Dosage: 200 MG, BID
     Dates: start: 20110114
  15. URSODIOL [Concomitant]
     Indication: PROPHYLAXIS
     Dosage: 600 MG, TID
     Route: 065
     Dates: start: 20051027, end: 20110307
  16. UREA [Concomitant]
     Indication: SKIN DISORDER
     Route: 061
     Dates: start: 20100814
  17. UREA [Concomitant]
     Indication: PROPHYLAXIS

REACTIONS (4)
  - HEPATIC ENCEPHALOPATHY [None]
  - DEPRESSED LEVEL OF CONSCIOUSNESS [None]
  - LIVER CARCINOMA RUPTURED [None]
  - PYREXIA [None]
